FAERS Safety Report 4587691-X (Version None)
Quarter: 2005Q1

REPORT INFORMATION
  Report Type: 
  Country: None (occurrence: None)
  Receive Date: 20050215
  Receipt Date: 20050120
  Transmission Date: 20050727
  Serious: Yes (Death, Hospitalization)
  Sender: FDA-Public Use
  Company Number: 2005-BP-00963BP

PATIENT

DRUGS (2)
  1. MOBIC [Suspect]
     Indication: OSTEOARTHRITIS
     Dosage: 15 MG (7.5 MG, 7.5 MG BID), PO
     Route: 048
     Dates: end: 20050101
  2. ACETYLSALICYLIC ACID SRT [Concomitant]

REACTIONS (2)
  - ANAEMIA [None]
  - UPPER GASTROINTESTINAL HAEMORRHAGE [None]
